FAERS Safety Report 11929722 (Version 4)
Quarter: 2016Q1

REPORT INFORMATION
  Report Type: Spontaneous
  Country: PL (occurrence: PL)
  Receive Date: 20160120
  Receipt Date: 20160310
  Transmission Date: 20160526
  Serious: Yes (Other)
  Sender: FDA-Public Use
  Company Number: PL-ACTAVIS-2016-00768

PATIENT
  Age: 68 Year
  Sex: Male
  Weight: 89 kg

DRUGS (3)
  1. OXALIPLATIN ACCORD [Suspect]
     Active Substance: OXALIPLATIN
     Indication: COLON CANCER
     Dosage: 80 MG, UNKNOWN
     Route: 065
     Dates: start: 201503, end: 201503
  2. CALCIUM FOLINATE [Suspect]
     Active Substance: LEUCOVORIN CALCIUM
     Indication: COLON CANCER
     Dosage: UNK
     Route: 065
     Dates: start: 201503, end: 201503
  3. FLUOROURACIL (UNKNOWN) [Suspect]
     Active Substance: FLUOROURACIL
     Indication: COLON CANCER
     Dosage: UNK
     Route: 065
     Dates: start: 201503, end: 201503

REACTIONS (4)
  - Thrombocytopenic purpura [Unknown]
  - Pyrexia [Unknown]
  - Chills [Unknown]
  - Renal pain [Unknown]

NARRATIVE: CASE EVENT DATE: 201503
